FAERS Safety Report 8852215 (Version 3)
Quarter: 2015Q1

REPORT INFORMATION
  Report Type: Report from Study
  Country: JP (occurrence: JP)
  Receive Date: 20121022
  Receipt Date: 20150227
  Transmission Date: 20150721
  Serious: Yes (Hospitalization, Other)
  Sender: FDA-Public Use
  Company Number: JP-009507513-1110USA00861

PATIENT
  Age: 65 Year
  Sex: Male

DRUGS (8)
  1. STOCRIN TABLETS 200MG [Suspect]
     Active Substance: EFAVIRENZ
     Indication: HIV INFECTION
     Dosage: 600 MG, UNK, DIVIDED DOSE AMOUNT
     Route: 048
     Dates: start: 20090413, end: 20101205
  2. ISENTRESS [Suspect]
     Active Substance: RALTEGRAVIR POTASSIUM
     Indication: HIV INFECTION
     Dosage: 800 MG, UNK, DIVIDED DOSE FREQUENCY
     Route: 048
     Dates: start: 20101206
  3. PEGINTRON [Suspect]
     Active Substance: PEGINTERFERON ALFA-2B
     Indication: CHRONIC HEPATITIS C
     Dosage: 100 ?G, QW
     Route: 058
     Dates: start: 20101214, end: 20111114
  4. REBETOL [Suspect]
     Active Substance: RIBAVIRIN
     Dosage: 200 MG QD
     Route: 048
     Dates: start: 20110207, end: 20110627
  5. REBETOL [Suspect]
     Active Substance: RIBAVIRIN
     Indication: CHRONIC HEPATITIS C
     Dosage: 400 MG, BID
     Route: 048
     Dates: start: 20101214, end: 20110206
  6. TRUVADA [Concomitant]
     Active Substance: EMTRICITABINE\TENOFOVIR DISOPROXIL FUMARATE
     Indication: HIV INFECTION
     Dosage: 1 DF, UNK
     Route: 048
     Dates: start: 20090302
  7. REBETOL [Suspect]
     Active Substance: RIBAVIRIN
     Dosage: 400 MG, QD
     Route: 048
     Dates: start: 20110207, end: 20110627
  8. REBETOL [Suspect]
     Active Substance: RIBAVIRIN
     Dosage: 200 MG, BID
     Route: 048
     Dates: start: 20110628, end: 20111114

REACTIONS (2)
  - Pancytopenia [Recovered/Resolved]
  - Chronic hepatitis C [Recovered/Resolved]

NARRATIVE: CASE EVENT DATE: 20100802
